FAERS Safety Report 5131845-0 (Version None)
Quarter: 2006Q4

REPORT INFORMATION
  Report Type: 
  Country: None (occurrence: None)
  Receive Date: 20061016
  Receipt Date: 20061006
  Transmission Date: 20070319
  Serious: Yes (Other)
  Sender: FDA-Public Use
  Company Number: 2006123504

PATIENT
  Sex: Female
  Weight: 68.0396 kg

DRUGS (8)
  1. ZOLOFT [Suspect]
     Indication: STRESS
     Dosage: 50 MG (50 MG, 1 IN 1 D)
  2. TAXOL [Suspect]
     Indication: BREAST CANCER
     Dates: start: 20060101
  3. CHEMOTHERAPY NOS (CHEMOTHERAPY NOS) [Suspect]
     Indication: BREAST CANCER
     Dates: start: 20060101
  4. TEMAZEPAM [Concomitant]
  5. B COMPLEX (NICOTINAMIDE, PYRIDOXINE HYDROCHLORIDE, RIBOFLAVIN, THIAMIN [Concomitant]
  6. THIAMINE [Concomitant]
  7. GRAPE SEED EXTRACT (VITIS VINIFERA EXTRACT) [Concomitant]
  8. ATENOLOL [Concomitant]

REACTIONS (5)
  - BREAST CANCER FEMALE [None]
  - CONDITION AGGRAVATED [None]
  - NEUROPATHY [None]
  - PANIC ATTACK [None]
  - STRESS [None]
